FAERS Safety Report 7912651-8 (Version None)
Quarter: 2011Q4

REPORT INFORMATION
  Report Type: 
  Country: None (occurrence: None)
  Receive Date: 20111114
  Receipt Date: 20111107
  Transmission Date: 20120403
  Serious: Yes (Hospitalization, Other)
  Sender: FDA-Public Use
  Company Number: US-SANOFI-AVENTIS-2011SA073783

PATIENT
  Age: 57 Year
  Sex: Male
  Weight: 117 kg

DRUGS (16)
  1. PROTONIX [Concomitant]
  2. PLAVIX [Suspect]
     Indication: STENT PLACEMENT
     Route: 048
     Dates: start: 20000101
  3. AVASTIN [Concomitant]
     Indication: GLAUCOMA
     Dosage: SHOTS IN BOTH EYES EVERY FOUR WEEKS
  4. KLOR-CON [Concomitant]
  5. TAXOL [Concomitant]
  6. LANTUS [Concomitant]
     Dosage: DOSE:45 UNIT(S)
     Route: 058
  7. AVASTIN [Concomitant]
     Dosage: SHOTS IN BOTH EYES EVERY FOUR WEEKS
  8. COREG [Concomitant]
  9. NOVOLOG [Concomitant]
  10. TESTOSTERONE CYPIONATE [Concomitant]
     Route: 058
  11. LORAZEPAM [Concomitant]
  12. BUMEX [Concomitant]
  13. ASPIRIN [Concomitant]
  14. MAGNESIUM OXIDE [Concomitant]
  15. BUMEX [Concomitant]
  16. LYRICA [Concomitant]

REACTIONS (7)
  - LOCALISED INFECTION [None]
  - CORONARY ARTERY DISEASE [None]
  - VISUAL ACUITY REDUCED [None]
  - CORONARY ARTERY OCCLUSION [None]
  - MYOCARDIAL INFARCTION [None]
  - ARTERIAL INJURY [None]
  - NEUROPATHY PERIPHERAL [None]
